FAERS Safety Report 14504285 (Version 1)
Quarter: 2018Q1

REPORT INFORMATION
  Report Type: Spontaneous
  Country: US (occurrence: US)
  Receive Date: 20180208
  Receipt Date: 20180208
  Transmission Date: 20180509
  Serious: No
  Sender: FDA-Public Use
  Company Number: US-JNJFOC-20171206584

PATIENT
  Age: 75 Year
  Sex: Female
  Weight: 60.78 kg

DRUGS (2)
  1. TYLENOL REGULAR STRENGTH [Suspect]
     Active Substance: ACETAMINOPHEN
     Indication: HEADACHE
     Dosage: 3 TABLETS EVERY 4-5 HOURS
     Route: 065
  2. TYLENOL EXTRA STRENGTH [Concomitant]
     Active Substance: ACETAMINOPHEN
     Indication: HEADACHE
     Dosage: EVERY 4-6 HOURS.
     Route: 065

REACTIONS (3)
  - Incorrect dose administered [Unknown]
  - Drug administration error [Unknown]
  - Blood glucose increased [Not Recovered/Not Resolved]
